FAERS Safety Report 24365443 (Version 2)
Quarter: 2025Q2

REPORT INFORMATION
  Report Type: Spontaneous
  Country: PT (occurrence: PT)
  Receive Date: 20240926
  Receipt Date: 20250614
  Transmission Date: 20250717
  Serious: Yes (Hospitalization, Disabling, Other)
  Sender: CELLTRION
  Company Number: PT-CELLTRION INC.-2024PT022682

PATIENT

DRUGS (10)
  1. INFLIXIMAB [Suspect]
     Active Substance: INFLIXIMAB
     Indication: Crohn^s disease
     Route: 042
  2. REMICADE [Suspect]
     Active Substance: INFLIXIMAB
     Indication: Crohn^s disease
     Route: 041
  3. PREDNISOLONE [Concomitant]
     Active Substance: PREDNISOLONE
  4. PREDNISOLONE [Concomitant]
     Active Substance: PREDNISOLONE
  5. ACETAMINOPHEN [Concomitant]
     Active Substance: ACETAMINOPHEN
  6. THIOCOLCHICOSIDE [Concomitant]
     Active Substance: THIOCOLCHICOSIDE
  7. PIPERACILLIN SODIUM\TAZOBACTAM SODIUM [Concomitant]
     Active Substance: PIPERACILLIN SODIUM\TAZOBACTAM SODIUM
  8. VANCOMYCIN [Concomitant]
     Active Substance: VANCOMYCIN
  9. FLUCLOXACILLIN [Concomitant]
     Active Substance: FLUCLOXACILLIN
  10. CEFAZOLIN [Concomitant]
     Active Substance: CEFAZOLIN

REACTIONS (5)
  - Sacroiliitis [Recovered/Resolved]
  - Pelvic abscess [Recovered/Resolved]
  - Staphylococcal bacteraemia [Recovered/Resolved]
  - Arthritis infective [Recovered/Resolved]
  - Infection susceptibility increased [Recovered/Resolved]
